FAERS Safety Report 6693653-9 (Version None)
Quarter: 2010Q2

REPORT INFORMATION
  Report Type: 
  Country: None (occurrence: None)
  Receive Date: 20100423
  Receipt Date: 20100409
  Transmission Date: 20101027
  Serious: Yes (Disabling, Other)
  Sender: FDA-Public Use
  Company Number: GB-RANBAXY-2010RR-33204

PATIENT
  Age: 81 Year
  Sex: Female

DRUGS (6)
  1. PRAVASTATIN [Suspect]
     Dosage: 20 MG, UNK
     Dates: start: 20100322
  2. PRAVASTATIN [Suspect]
     Dosage: 10 MG, UNK
  3. FUROSEMIDE [Concomitant]
  4. MIRTAZAPINE [Concomitant]
     Dosage: 20 MG, UNK
  5. WARFARIN [Concomitant]
  6. ZOPICLONE [Concomitant]
     Dosage: 2 DF, UNK

REACTIONS (3)
  - ABNORMAL DREAMS [None]
  - AGGRESSION [None]
  - EMOTIONAL DISTRESS [None]
